FAERS Safety Report 7634658-0 (Version None)
Quarter: 2011Q3

REPORT INFORMATION
  Report Type: 
  Country: None (occurrence: None)
  Receive Date: 20110725
  Receipt Date: 20110720
  Transmission Date: 20111222
  Serious: Yes (Life-Threatening, Hospitalization, Other)
  Sender: FDA-Public Use
  Company Number: JP-CELGENEUS-087-21880-11030996

PATIENT
  Sex: Male

DRUGS (38)
  1. REVLIMID [Suspect]
     Dosage: 5 MILLIGRAM
     Route: 048
     Dates: start: 20110329, end: 20110411
  2. YOUCOBAL [Concomitant]
     Dosage: 1500 MILLIGRAM
     Route: 048
     Dates: start: 20110210, end: 20110329
  3. HARNAL D [Concomitant]
     Dosage: .2 MILLIGRAM
     Route: 048
     Dates: start: 20110210, end: 20110329
  4. CYCLOPHOSPHAMIDE [Concomitant]
     Dosage: 300 MILLIGRAM
     Route: 041
     Dates: start: 20110419, end: 20110419
  5. DEXAMETHASONE [Suspect]
     Indication: MULTIPLE MYELOMA
     Dosage: 20 MILLIGRAM
     Route: 048
     Dates: start: 20110111, end: 20110124
  6. SULFAMETHOXAZOLE [Concomitant]
     Dosage: .5 MILLIGRAM
     Route: 048
     Dates: start: 20110210, end: 20110329
  7. ALLORIN [Concomitant]
     Dosage: 100 MILLIGRAM
     Route: 048
     Dates: start: 20110210, end: 20110329
  8. FLUCONAZOLE [Concomitant]
     Dosage: 100 MILLIGRAM
     Route: 048
     Dates: start: 20110210, end: 20110329
  9. REVLIMID [Suspect]
     Indication: MULTIPLE MYELOMA
     Dosage: 10 MILLIGRAM
     Route: 048
     Dates: start: 20110111, end: 20110131
  10. GOSHA-JINKI-GAN [Concomitant]
     Dosage: 7.5 GRAM
     Route: 048
     Dates: start: 20110210, end: 20110329
  11. ORGADRONE [Concomitant]
     Dosage: 19 MILLIGRAM
     Route: 041
     Dates: start: 20110426, end: 20110429
  12. FAMOTIDINE [Concomitant]
     Indication: PROPHYLAXIS
     Dosage: 10 MILLIGRAM
     Route: 048
     Dates: start: 20110111, end: 20110207
  13. ZOVIRAX [Concomitant]
     Indication: PROPHYLAXIS
     Dosage: 200 MILLIGRAM
     Route: 048
     Dates: start: 20110111, end: 20110207
  14. DEXAMETHASONE [Suspect]
     Dosage: 20 MILLIGRAM
     Route: 048
     Dates: start: 20110218, end: 20110221
  15. DEXAMETHASONE [Suspect]
     Dosage: 20 MILLIGRAM
     Route: 048
     Dates: start: 20110226, end: 20110301
  16. DEXAMETHASONE [Suspect]
     Dosage: 20 MILLIGRAM
     Route: 048
     Dates: start: 20110323, end: 20110325
  17. ORGADRONE [Concomitant]
     Dosage: 19 MILLIGRAM
     Route: 041
     Dates: start: 20110412, end: 20110415
  18. FAMOTIDINE [Concomitant]
     Dosage: 10 MILLIGRAM
     Route: 048
     Dates: start: 20110210, end: 20110421
  19. MAGNESIUM HYDROXIDE [Concomitant]
     Dosage: .5 GRAM
     Route: 048
     Dates: start: 20110210, end: 20110329
  20. LASIX [Concomitant]
     Indication: PROPHYLAXIS
     Dosage: 20 MILLIGRAM
     Route: 048
     Dates: start: 20110111, end: 20110207
  21. REVLIMID [Suspect]
     Dosage: 5 MILLIGRAM
     Route: 048
     Dates: start: 20110308, end: 20110321
  22. DEXAMETHASONE [Suspect]
     Dosage: 20 MILLIGRAM
     Route: 048
     Dates: start: 20110308, end: 20110311
  23. YOUCOBAL [Concomitant]
     Dosage: 1500 MILLIGRAM
     Route: 048
     Dates: start: 20110111, end: 20110207
  24. GOSHA-JINKI-GAN [Concomitant]
     Dosage: 7.5 GRAM
     Route: 048
     Dates: start: 20110111, end: 20110207
  25. ORGADRONE [Concomitant]
     Indication: MULTIPLE MYELOMA
     Dosage: 38 MILLIGRAM
     Route: 041
     Dates: start: 20110210, end: 20110213
  26. MAGNESIUM HYDROXIDE [Concomitant]
     Indication: PROPHYLAXIS
     Dosage: .5 GRAM
     Route: 048
     Dates: start: 20110111, end: 20110207
  27. HARNAL D [Concomitant]
     Dosage: .2 MILLIGRAM
     Route: 048
     Dates: start: 20110111, end: 20110207
  28. LASIX [Concomitant]
     Dosage: 20 MILLIGRAM
     Route: 048
     Dates: start: 20110210, end: 20110329
  29. REVLIMID [Suspect]
     Dosage: 10 MILLIGRAM
     Route: 048
     Dates: start: 20110210, end: 20110225
  30. ASPIRIN [Concomitant]
     Indication: PROPHYLAXIS
     Dosage: 100 MILLIGRAM
     Route: 048
     Dates: start: 20110111, end: 20110207
  31. ASPIRIN [Concomitant]
     Dosage: 100 MILLIGRAM
     Route: 048
     Dates: start: 20110210, end: 20110329
  32. SULFAMETHOXAZOLE [Concomitant]
     Indication: PROPHYLAXIS
     Dosage: .5 MILLIGRAM
     Route: 048
     Dates: start: 20110111, end: 20110207
  33. ZOVIRAX [Concomitant]
     Dosage: 200 MILLIGRAM
     Route: 048
     Dates: start: 20110210, end: 20110329
  34. DEPAKENE [Concomitant]
     Indication: PROPHYLAXIS
     Dosage: 600 MILLIGRAM
     Route: 048
     Dates: start: 20110111, end: 20110207
  35. FLUCONAZOLE [Concomitant]
     Indication: PROPHYLAXIS
     Dosage: 100 MILLIGRAM
     Route: 048
     Dates: start: 20110111, end: 20110207
  36. DEXAMETHASONE [Suspect]
     Dosage: 20 MILLIGRAM
     Route: 048
     Dates: start: 20110315, end: 20110318
  37. ALLORIN [Concomitant]
     Indication: PROPHYLAXIS
     Dosage: 100 MILLIGRAM
     Route: 048
     Dates: start: 20110111, end: 20110207
  38. DEPAKENE [Concomitant]
     Dosage: 600 MILLIGRAM
     Route: 048
     Dates: start: 20110210, end: 20110421

REACTIONS (4)
  - PNEUMONIA [None]
  - NEUTROPHIL COUNT DECREASED [None]
  - PNEUMONIA ASPIRATION [None]
  - PLATELET COUNT DECREASED [None]
